FAERS Safety Report 5500280-5 (Version None)
Quarter: 2007Q4

REPORT INFORMATION
  Report Type: 
  Country: None (occurrence: None)
  Receive Date: 20071025
  Receipt Date: 20070928
  Transmission Date: 20080405
  Serious: Yes (Death, Hospitalization, Other)
  Sender: FDA-Public Use
  Company Number: JPKYO-S-20070039

PATIENT
  Sex: Female

DRUGS (6)
  1. NAVELBINE [Suspect]
     Indication: BREAST CANCER RECURRENT
     Dosage: 25 MG/M2 IV
     Route: 042
     Dates: start: 20070821, end: 20070821
  2. ADRIAMYCIN PFS [Suspect]
     Indication: BREAST CANCER RECURRENT
  3. HYSRON. MFR: NOT SPECIFIED [Suspect]
     Indication: DRUG USE FOR UNKNOWN INDICATION
  4. LOXONIN. MFR: NOT SPECIFIED [Suspect]
     Indication: DRUG USE FOR UNKNOWN INDICATION
     Dosage: 180 MG QD PO
     Route: 048
  5. OXYCONTIN [Suspect]
     Indication: DRUG USE FOR UNKNOWN INDICATION
     Dosage: 80 MG QD PO
     Route: 048
  6. TAXOL [Concomitant]

REACTIONS (9)
  - ASPARTATE AMINOTRANSFERASE INCREASED [None]
  - BLOOD CREATININE INCREASED [None]
  - BLOOD LACTATE DEHYDROGENASE INCREASED [None]
  - CARDIAC FAILURE ACUTE [None]
  - LEUKOPENIA [None]
  - NEUTROPENIA [None]
  - PAIN IN EXTREMITY [None]
  - PROTEIN TOTAL DECREASED [None]
  - PROTEIN TOTAL INCREASED [None]
